FAERS Safety Report 6094071-7 (Version None)
Quarter: 2009Q1

REPORT INFORMATION
  Report Type: 
  Country: None (occurrence: None)
  Receive Date: 20090223
  Receipt Date: 20090216
  Transmission Date: 20090719
  Serious: Yes (Death, Hospitalization, Disabling)
  Sender: FDA-Public Use
  Company Number: 100#03#2008-06114

PATIENT
  Age: 36 Year
  Sex: Female

DRUGS (7)
  1. CARBOPLATIN [Suspect]
     Indication: ADENOCARCINOMA
  2. GEMCITABINE [Suspect]
     Indication: ADENOCARCINOMA
  3. TARCEVA [Suspect]
     Indication: ADENOCARCINOMA
     Dosage: 50 MG ORAL
     Route: 048
     Dates: start: 20081015
  4. TAXOTERE [Suspect]
     Indication: ADENOCARCINOMA
  5. DEXAMETHASONE TAB [Concomitant]
  6. KEPPRA [Concomitant]
  7. VALPROIC ACID [Concomitant]

REACTIONS (8)
  - BILE DUCT CANCER [None]
  - CONVULSION [None]
  - DISEASE PROGRESSION [None]
  - METASTASES TO BONE [None]
  - METASTASES TO CENTRAL NERVOUS SYSTEM [None]
  - METASTASES TO LIVER [None]
  - METASTASES TO LUNG [None]
  - NO THERAPEUTIC RESPONSE [None]
